FAERS Safety Report 8196259-8 (Version None)
Quarter: 2012Q1

REPORT INFORMATION
  Report Type: 
  Country: None (occurrence: None)
  Receive Date: 20120309
  Receipt Date: 20120307
  Transmission Date: 20120608
  Serious: No
  Sender: FDA-Public Use
  Company Number: US-PFIZER INC-2012061551

PATIENT
  Sex: Male
  Weight: 95.238 kg

DRUGS (5)
  1. ACIPHEX [Concomitant]
     Indication: GASTROENTERITIS
     Dosage: 20 MG, DAILY
  2. NEURONTIN [Suspect]
     Indication: NERVE INJURY
     Dosage: 300 MG, 3X/DAY
     Route: 048
  3. NEURONTIN [Suspect]
     Indication: MUSCLE SPASMS
     Dosage: 50 MG, 2X/DAY
     Route: 048
  4. NEURONTIN [Suspect]
     Dosage: 600 MG, 3X/DAY
     Route: 048
     Dates: end: 20120201
  5. METHADONE [Concomitant]
     Indication: BACK PAIN
     Dosage: 10 MG, 4X/DAY

REACTIONS (3)
  - MUSCLE SPASMS [None]
  - DISCOMFORT [None]
  - PAIN [None]
